FAERS Safety Report 23693850 (Version 1)
Quarter: 2024Q2

REPORT INFORMATION
  Report Type: Spontaneous
  Country: US (occurrence: US)
  Receive Date: 20240401
  Receipt Date: 20240401
  Transmission Date: 20240716
  Serious: No
  Sender: FDA-Public Use
  Company Number: US-ABBVIE-5693086

PATIENT
  Sex: Female

DRUGS (1)
  1. RINVOQ [Suspect]
     Active Substance: UPADACITINIB
     Indication: Product used for unknown indication
     Dosage: FORM STRENGTH 15 MILLIGRAMS
     Route: 048

REACTIONS (4)
  - Product contamination [Unknown]
  - Incorrect dose administered [Unknown]
  - Product container seal issue [Not Recovered/Not Resolved]
  - Poor quality product administered [Unknown]
